FAERS Safety Report 20503797 (Version 1)
Quarter: 2022Q1

REPORT INFORMATION
  Report Type: Spontaneous
  Country: US (occurrence: None)
  Receive Date: 20220221
  Receipt Date: 20220221
  Transmission Date: 20220423
  Serious: No
  Sender: FDA-Public Use
  Company Number: None

PATIENT
  Age: 78 Year
  Sex: Male
  Weight: 90 kg

DRUGS (19)
  1. ABIRATERONE ACETATE [Suspect]
     Active Substance: ABIRATERONE ACETATE
     Indication: Prostate cancer
     Dosage: FREQUENCY : DAILY;?
     Route: 048
     Dates: start: 20220122
  2. PREDNISONE [Suspect]
     Active Substance: PREDNISONE
     Indication: Prostate cancer
     Dosage: FREQUENCY : TWICE A DAY;?
     Route: 048
     Dates: start: 20220122
  3. VITAMINS [Concomitant]
     Active Substance: VITAMINS
  4. HYDROCHLOROTHIAZIDE [Concomitant]
     Active Substance: HYDROCHLOROTHIAZIDE
  5. LISINOPRIL [Concomitant]
     Active Substance: LISINOPRIL
  6. SIMVASTATIN [Concomitant]
     Active Substance: SIMVASTATIN
  7. ASPIRIN [Concomitant]
     Active Substance: ASPIRIN
  8. VITAMIN C [Concomitant]
     Active Substance: ASCORBIC ACID
  9. Calcium-Vitamin D 315mg-250IU [Concomitant]
  10. Vitamin B12 1000mcg [Concomitant]
  11. Zinc gluconate 50mg [Concomitant]
  12. Vitamin D 25mcg [Concomitant]
  13. Co Q-10 30mg [Concomitant]
  14. Grape Seed Oil 50mg [Concomitant]
  15. PRIVIGEN [Concomitant]
     Active Substance: HUMAN IMMUNOGLOBULIN G
  16. PROBIOTICS NOS [Concomitant]
     Active Substance: PROBIOTICS NOS
  17. NAC 600 [Concomitant]
  18. TYLENOL [Concomitant]
     Active Substance: ACETAMINOPHEN
  19. Biofreeze Gel 4% [Concomitant]

REACTIONS (2)
  - Transient ischaemic attack [None]
  - Thrombosis [None]

NARRATIVE: CASE EVENT DATE: 20220221
